FAERS Safety Report 24147378 (Version 2)
Quarter: 2024Q3

REPORT INFORMATION
  Report Type: Report from Study
  Country: US (occurrence: US)
  Receive Date: 20240729
  Receipt Date: 20240807
  Transmission Date: 20241017
  Serious: Yes (Hospitalization, Other)
  Sender: ROCHE
  Company Number: US-ROCHE-10000033334

PATIENT
  Age: 74 Year
  Sex: Female
  Weight: 79.38 kg

DRUGS (5)
  1. OCREVUS [Suspect]
     Active Substance: OCRELIZUMAB
     Indication: Multiple sclerosis
     Dosage: FULL DOSES
     Route: 042
     Dates: start: 2018, end: 201912
  2. OCREVUS [Suspect]
     Active Substance: OCRELIZUMAB
     Indication: Primary progressive multiple sclerosis
     Dosage: 2 HALF DOSES 2 WEEKS APART
     Route: 042
     Dates: start: 2018
  3. OCREVUS [Suspect]
     Active Substance: OCRELIZUMAB
     Dosage: DATE OF TREATMENT: 06/NOV/2018
     Route: 042
     Dates: start: 20181106, end: 20191010
  4. KESIMPTA [Suspect]
     Active Substance: OFATUMUMAB
     Indication: Multiple sclerosis
     Route: 058
     Dates: start: 2020, end: 202310
  5. KESIMPTA [Suspect]
     Active Substance: OFATUMUMAB
     Indication: Primary progressive multiple sclerosis
     Route: 058
     Dates: start: 20210706, end: 202310

REACTIONS (16)
  - Osteoarthritis [Recovered/Resolved]
  - Therapy non-responder [Unknown]
  - Sepsis [Recovered/Resolved]
  - Urinary tract infection [Recovered/Resolved]
  - Asthenia [Unknown]
  - Gait disturbance [Not Recovered/Not Resolved]
  - Fall [Unknown]
  - Neck pain [Recovered/Resolved]
  - Fall [Unknown]
  - Haemorrhage [Recovered/Resolved]
  - Cataract [Not Recovered/Not Resolved]
  - Swelling [Recovered/Resolved]
  - Arterial occlusive disease [Recovered/Resolved]
  - Asthenia [Recovered/Resolved]
  - Anaemia [Unknown]
  - Back pain [Unknown]

NARRATIVE: CASE EVENT DATE: 20230101
